FAERS Safety Report 15567204 (Version 5)
Quarter: 2018Q4

REPORT INFORMATION
  Report Type: Report from Study
  Country: US (occurrence: US)
  Receive Date: 20181030
  Receipt Date: 20181218
  Transmission Date: 20190205
  Serious: Yes (Hospitalization)
  Sender: FDA-Public Use
  Company Number: US-EISAI MEDICAL RESEARCH-EC-2018-046966

PATIENT
  Age: 69 Year
  Sex: Female
  Weight: 71.3 kg

DRUGS (20)
  1. LENVATINIB [Suspect]
     Active Substance: LENVATINIB
     Dosage: BLINDED DOSE
     Route: 048
     Dates: start: 20181202, end: 20181210
  2. FIRST MOUTHWASH BLM MUCOUS MEMBRANE SUSPENSION [Concomitant]
  3. LEVOTHYROXINE. [Concomitant]
     Active Substance: LEVOTHYROXINE
  4. NORCO [Concomitant]
     Active Substance: ACETAMINOPHEN\HYDROCODONE BITARTRATE
  5. SENNA [Concomitant]
     Active Substance: SENNA LEAF\SENNOSIDES\SENNOSIDES A AND B
  6. LENVATINIB [Suspect]
     Active Substance: LENVATINIB
     Indication: THYROID CANCER
     Dosage: BLINDED DOSE
     Route: 048
     Dates: start: 20181009, end: 20181021
  7. ASPIRIN. [Concomitant]
     Active Substance: ASPIRIN
  8. DULOXETINE. [Concomitant]
     Active Substance: DULOXETINE
  9. LENVATINIB [Suspect]
     Active Substance: LENVATINIB
     Dosage: BLINDED DOSE
     Route: 048
     Dates: start: 20181023, end: 20181024
  10. LENVATINIB [Suspect]
     Active Substance: LENVATINIB
     Dosage: BLINDED DOSE
     Route: 048
     Dates: start: 20181102, end: 20181129
  11. PLAQUENIL SULFATE [Concomitant]
     Active Substance: HYDROXYCHLOROQUINE SULFATE
  12. VOLTAREN [Concomitant]
     Active Substance: DICLOFENAC SODIUM
  13. METFORMIN [Concomitant]
     Active Substance: METFORMIN HYDROCHLORIDE
  14. FOLIC ACID. [Concomitant]
     Active Substance: FOLIC ACID
  15. MIRALAX [Concomitant]
     Active Substance: POLYETHYLENE GLYCOL 3350
  16. METHOTREXATE. [Concomitant]
     Active Substance: METHOTREXATE
  17. COZAAR [Concomitant]
     Active Substance: LOSARTAN POTASSIUM
  18. GLIPIZIDE. [Concomitant]
     Active Substance: GLIPIZIDE
  19. COLACE [Concomitant]
     Active Substance: DOCUSATE SODIUM
  20. OXYBUTYNIN. [Concomitant]
     Active Substance: OXYBUTYNIN CHLORIDE

REACTIONS (3)
  - Pneumomediastinum [Recovered/Resolved]
  - Subcutaneous haematoma [Recovered/Resolved]
  - Fall [Recovered/Resolved]

NARRATIVE: CASE EVENT DATE: 20181025
